FAERS Safety Report 4290909-4 (Version None)
Quarter: 2004Q1

REPORT INFORMATION
  Report Type: 
  Country: None (occurrence: None)
  Receive Date: 20040209
  Receipt Date: 20040126
  Transmission Date: 20041129
  Serious: Yes (Hospitalization)
  Sender: FDA-Public Use
  Company Number: RGD 54756/410 C-536F

PATIENT
  Age: 28 Year
  Sex: Female
  Weight: 64 kg

DRUGS (3)
  1. LEVONELLE-2 [Suspect]
     Indication: POST COITAL CONTRACEPTION
     Dosage: 2 DOSES ORALLY
     Dates: start: 20010416
  2. FLUOXETINE HCL [Concomitant]
  3. CILNEST (ETHYNYLESTRADIOL/NORGESTERERINE [Concomitant]

REACTIONS (2)
  - COMPLICATIONS OF MATERNAL EXPOSURE TO THERAPEUTIC DRUGS [None]
  - ECTOPIC PREGNANCY [None]
